FAERS Safety Report 11519735 (Version 1)
Quarter: 2015Q3

REPORT INFORMATION
  Report Type: Spontaneous
  Country: US (occurrence: US)
  Receive Date: 20150918
  Receipt Date: 20150918
  Transmission Date: 20151125
  Serious: No
  Sender: FDA-Public Use
  Company Number: US-GLENMARK PHARMACEUTICALS INC, USA.-2015GMK017216

PATIENT

DRUGS (2)
  1. NORETHINDRONE ACETATE TABLETS [Suspect]
     Active Substance: NORETHINDRONE ACETATE
     Indication: PRODUCT USED FOR UNKNOWN INDICATION
     Dosage: UNK, QD
     Route: 048
     Dates: start: 20150319, end: 201504
  2. LEUPROLIDE ACETATE. [Suspect]
     Active Substance: LEUPROLIDE ACETATE
     Indication: ENDOMETRIOSIS
     Dosage: UNK, ONCE IN ONE MONTH
     Dates: start: 20150319, end: 201504

REACTIONS (5)
  - Metrorrhagia [Unknown]
  - Thrombosis [Unknown]
  - Dizziness [Unknown]
  - Menorrhagia [Unknown]
  - Asthenia [Unknown]

NARRATIVE: CASE EVENT DATE: 20150404
